FAERS Safety Report 4642759-4 (Version None)
Quarter: 2005Q2

REPORT INFORMATION
  Report Type: 
  Country: None (occurrence: None)
  Receive Date: 20050420
  Receipt Date: 20050407
  Transmission Date: 20051028
  Serious: Yes (Other)
  Sender: FDA-Public Use
  Company Number: 2005052816

PATIENT
  Age: 26 Year
  Sex: Male

DRUGS (4)
  1. PHENELZINE SULFATE (PHENELZINE SULFATE) [Suspect]
     Indication: ABNORMAL BEHAVIOUR
     Dosage: 45 MG (15 MG, 3 IN 1 D), ORAL
     Route: 048
     Dates: start: 20041001
  2. PHENELZINE SULFATE (PHENELZINE SULFATE) [Suspect]
     Indication: ANXIETY
     Dosage: 45 MG (15 MG, 3 IN 1 D), ORAL
     Route: 048
     Dates: start: 20041001
  3. GABAPENTIN [Concomitant]
  4. QUETIAPINE FUMARATE [Concomitant]

REACTIONS (35)
  - AGITATION [None]
  - ARTHRITIS [None]
  - AURA [None]
  - BACK PAIN [None]
  - BURNING SENSATION [None]
  - CONSTIPATION [None]
  - CONVULSION [None]
  - DEPRESSED LEVEL OF CONSCIOUSNESS [None]
  - DRUG INEFFECTIVE [None]
  - DYSKINESIA [None]
  - FACIAL SPASM [None]
  - FATIGUE [None]
  - FEELING OF RELAXATION [None]
  - GASTROINTESTINAL DISORDER [None]
  - HYPOAESTHESIA [None]
  - HYPOTENSION [None]
  - IRRITABILITY [None]
  - MICTURITION FREQUENCY DECREASED [None]
  - MICTURITION URGENCY [None]
  - MULTIPLE SCLEROSIS [None]
  - MUSCLE TWITCHING [None]
  - MYALGIA [None]
  - MYOCLONUS [None]
  - NAUSEA [None]
  - PAIN [None]
  - PAIN IN EXTREMITY [None]
  - PARAESTHESIA [None]
  - PRURITUS [None]
  - SCOTOMA [None]
  - STRESS [None]
  - TENDONITIS [None]
  - TRANSIENT ISCHAEMIC ATTACK [None]
  - TREMOR [None]
  - VERTIGO [None]
  - VISION BLURRED [None]
